FAERS Safety Report 10009838 (Version 2)
Quarter: 2014Q1

REPORT INFORMATION
  Report Type: Spontaneous
  Country: US (occurrence: US)
  Receive Date: 20140312
  Receipt Date: 20140312
  Transmission Date: 20141002
  Serious: Yes (Other)
  Sender: FDA-Public Use
  Company Number: US-INCYTE CORPORATION-2012IN001881

PATIENT
  Age: 72 Year
  Sex: Female

DRUGS (7)
  1. JAKAFI [Suspect]
     Indication: MYELOFIBROSIS
     Dosage: 5 MG, BID
     Route: 048
     Dates: start: 20120822, end: 20120920
  2. JAKAFI [Suspect]
     Dosage: 10 MG, BID
     Route: 048
     Dates: start: 20120921
  3. PROCRIT [Concomitant]
  4. SYNTHROID [Concomitant]
  5. OXYBUTYNIN CHLORIDE [Concomitant]
  6. PAROXETINE [Concomitant]
  7. ANAGRELIDE [Concomitant]

REACTIONS (2)
  - Anaemia [Unknown]
  - Headache [Unknown]
